FAERS Safety Report 10975717 (Version 2)
Quarter: 2015Q2

REPORT INFORMATION
  Report Type: Spontaneous
  Country: DE (occurrence: DE)
  Receive Date: 20150401
  Receipt Date: 20150402
  Transmission Date: 20150821
  Serious: Yes (Other)
  Sender: FDA-Public Use
  Company Number: DE-TEVA-551328GER

PATIENT
  Sex: Male

DRUGS (1)
  1. VALPROINSAEURE-RATIOPHARM 600 FILMTABLETTEN [Suspect]
     Active Substance: VALPROIC ACID
     Indication: DEPRESSION
     Route: 048
     Dates: start: 2006

REACTIONS (4)
  - Musculoskeletal stiffness [Unknown]
  - Thyroiditis acute [Unknown]
  - Oropharyngeal pain [Unknown]
  - Thyroid neoplasm [Unknown]

NARRATIVE: CASE EVENT DATE: 201503
